FAERS Safety Report 7468392-7 (Version None)
Quarter: 2011Q2

REPORT INFORMATION
  Report Type: 
  Country: None (occurrence: None)
  Receive Date: 20110509
  Receipt Date: 20110429
  Transmission Date: 20111010
  Serious: Yes (Death, Hospitalization)
  Sender: FDA-Public Use
  Company Number: PH-BAXTER-2011BH014026

PATIENT
  Age: 73 Year
  Sex: Male

DRUGS (1)
  1. DIANEAL [Suspect]
     Indication: PERITONEAL DIALYSIS
     Route: 033
     Dates: start: 20081101

REACTIONS (4)
  - HAEMOGLOBIN DECREASED [None]
  - ASTHENIA [None]
  - CARDIAC ARREST [None]
  - ANAEMIA [None]
